FAERS Safety Report 21349453 (Version 1)
Quarter: 2022Q3

REPORT INFORMATION
  Report Type: Spontaneous
  Country: US (occurrence: US)
  Receive Date: 20220919
  Receipt Date: 20220919
  Transmission Date: 20221027
  Serious: No
  Sender: FDA-Public Use
  Company Number: US-JNJFOC-20220924500

PATIENT
  Sex: Male

DRUGS (1)
  1. MENS ROGAINE EXTRA STRENGTH [Suspect]
     Active Substance: MINOXIDIL
     Indication: Product used for unknown indication
     Dosage: START DATE: ABOUT A COUPLE MONTHS AGO. FREQUENCY AND DOSE REPORTED A HALF A CAPFUL TWICE A DAY.
     Route: 065

REACTIONS (3)
  - Alopecia [Not Recovered/Not Resolved]
  - Product container issue [Unknown]
  - Poor quality product administered [Unknown]
